FAERS Safety Report 24396395 (Version 1)
Quarter: 2024Q4

REPORT INFORMATION
  Report Type: Spontaneous
  Country: GB (occurrence: GB)
  Receive Date: 20241004
  Receipt Date: 20241004
  Transmission Date: 20250115
  Serious: Yes (Other)
  Sender: RANBAXY
  Company Number: GB-SUN PHARMACEUTICAL INDUSTRIES LTD-2024RR-471114

PATIENT
  Sex: Male

DRUGS (1)
  1. BICALUTAMIDE [Suspect]
     Active Substance: BICALUTAMIDE
     Indication: Adverse drug reaction
     Dosage: 150MG ONCE DAILY
     Route: 065
     Dates: start: 20231204, end: 20240509

REACTIONS (1)
  - Jaundice [Recovered/Resolved]

NARRATIVE: CASE EVENT DATE: 20240508
